FAERS Safety Report 9398866 (Version 1)
Quarter: 2013Q3

REPORT INFORMATION
  Report Type: Spontaneous
  Country: US (occurrence: US)
  Receive Date: 20130712
  Receipt Date: 20130712
  Transmission Date: 20140515
  Serious: No
  Sender: FDA-Public Use
  Company Number: US-TEVA-418034USA

PATIENT
  Sex: Female
  Weight: 85.81 kg

DRUGS (6)
  1. NUVIGIL [Suspect]
     Route: 048
  2. GABAPENTIN [Concomitant]
  3. SYNTHROID [Concomitant]
  4. KLONOPIN [Concomitant]
     Indication: NERVOUSNESS
  5. REPLAS 3 [Concomitant]
     Indication: MIGRAINE
  6. LAMICTAL [Concomitant]
     Indication: BIPOLAR DISORDER

REACTIONS (2)
  - Drug effect decreased [Not Recovered/Not Resolved]
  - Incorrect dose administered [Not Recovered/Not Resolved]
